FAERS Safety Report 8008330-1 (Version None)
Quarter: 2011Q4

REPORT INFORMATION
  Report Type: 
  Country: None (occurrence: None)
  Receive Date: 20111227
  Receipt Date: 20111214
  Transmission Date: 20120403
  Serious: Yes (Other)
  Sender: FDA-Public Use
  Company Number: PHHY2011BR109714

PATIENT
  Sex: Male

DRUGS (6)
  1. EXELON [Suspect]
     Dosage: 2 DF, 1 TABLET AFTER THE BREAKFAST AND 1 TABLET AFTER THE DINNER
     Route: 048
     Dates: start: 20111214
  2. ADALAT [Concomitant]
     Indication: BLOOD PRESSURE ABNORMAL
     Dosage: 1 DF, UNK
  3. PANTOPRAZOLE [Concomitant]
     Indication: GASTRIC DISORDER
     Dosage: 1 DF, UNK
  4. EXELON [Suspect]
     Indication: DEMENTIA ALZHEIMER'S TYPE
     Dosage: 1 DF, QHS
     Dates: start: 20111213
  5. MOTILIUM [Concomitant]
     Dosage: 1 DF, THREE TIMES A DAY BEFORE THE MEALS
     Dates: start: 20111214
  6. DIMETICONE [Concomitant]
     Indication: FLATULENCE
     Dosage: 1 DF, THREE TIMES A DAY

REACTIONS (3)
  - EYE MOVEMENT DISORDER [None]
  - VOMITING [None]
  - ABDOMINAL PAIN [None]
